FAERS Safety Report 16449279 (Version 5)
Quarter: 2021Q2

REPORT INFORMATION
  Report Type: Spontaneous
  Country: US (occurrence: US)
  Receive Date: 20190619
  Receipt Date: 20210520
  Transmission Date: 20210716
  Serious: Yes (Other)
  Sender: FDA-Public Use
  Company Number: US-GLAXOSMITHKLINE-US2019GSK108941

PATIENT
  Age: 61 Year
  Sex: Female

DRUGS (2)
  1. PRILOSEC [Suspect]
     Active Substance: OMEPRAZOLE MAGNESIUM
     Indication: PRODUCT USED FOR UNKNOWN INDICATION
     Dosage: 20 MG, QD
     Route: 065
     Dates: start: 20130321
  2. PREVACID 24 HR [Suspect]
     Active Substance: LANSOPRAZOLE
     Indication: PRODUCT USED FOR UNKNOWN INDICATION
     Dosage: UNKNOWN, UNKNOWN
     Route: 048

REACTIONS (12)
  - Renal failure [Unknown]
  - Microalbuminuria [Unknown]
  - Blood creatinine increased [Unknown]
  - Hyperchlorhydria [Unknown]
  - Haematuria [Unknown]
  - Glomerular filtration rate abnormal [Unknown]
  - Renal injury [Unknown]
  - Rebound effect [Unknown]
  - Chronic kidney disease [Not Recovered/Not Resolved]
  - Acute kidney injury [Unknown]
  - Renal impairment [Unknown]
  - Renal cyst haemorrhage [Unknown]

NARRATIVE: CASE EVENT DATE: 2015
